FAERS Safety Report 9038261 (Version 1)
Quarter: 2013Q1

REPORT INFORMATION
  Report Type: Spontaneous
  Country: US (occurrence: US)
  Receive Date: 20130129
  Receipt Date: 20130129
  Transmission Date: 20140127
  Serious: No
  Sender: FDA-Public Use
  Company Number: US-GLAXOSMITHKLINE-A0999591A

PATIENT
  Age: 59 Year
  Sex: Female

DRUGS (3)
  1. WELLBUTRIN [Suspect]
     Indication: DEPRESSION
     Dosage: 100MG THREE TIMES PER DAY
     Route: 048
     Dates: start: 2000, end: 20120930
  2. TIZANIDINE [Concomitant]
  3. HYDROCODONE [Concomitant]

REACTIONS (4)
  - Emotional disorder [Recovered/Resolved]
  - Crying [Unknown]
  - Depression [Unknown]
  - Product quality issue [Unknown]
